FAERS Safety Report 4282700-X (Version None)
Quarter: 2004Q1

REPORT INFORMATION
  Report Type: 
  Country: None (occurrence: None)
  Receive Date: 20040130
  Receipt Date: 20030312
  Transmission Date: 20041129
  Serious: No
  Sender: FDA-Public Use
  Company Number: US-BRISTOL-MYERS SQUIBB COMPANY-12213328

PATIENT

DRUGS (1)
  1. SERZONE [Suspect]
     Route: 048

REACTIONS (1)
  - MEDICATION ERROR [None]
